FAERS Safety Report 9334931 (Version 1)
Quarter: 2013Q2

REPORT INFORMATION
  Report Type: Spontaneous
  Country: US (occurrence: US)
  Receive Date: 20130606
  Receipt Date: 20130606
  Transmission Date: 20140414
  Serious: No
  Sender: FDA-Public Use
  Company Number: US-AMGEN-USASP2013027090

PATIENT
  Age: 76 Year
  Sex: Female

DRUGS (6)
  1. PROLIA [Suspect]
     Indication: OSTEOPOROSIS POSTMENOPAUSAL
     Dosage: UNK
     Dates: start: 20121129
  2. LEVOTHYROXINE [Concomitant]
  3. CLOPIDOGREL [Concomitant]
  4. BISOPROLOL [Concomitant]
  5. FAMOTIDINE [Concomitant]
  6. VITAMIN D                          /00318501/ [Concomitant]
     Dosage: UNK UNK, QD

REACTIONS (2)
  - Bursitis [Unknown]
  - Sleep disorder [Unknown]
